FAERS Safety Report 7976197-3 (Version None)
Quarter: 2011Q4

REPORT INFORMATION
  Report Type: 
  Country: None (occurrence: None)
  Receive Date: 20111213
  Receipt Date: 20111013
  Transmission Date: 20120403
  Serious: No
  Sender: FDA-Public Use
  Company Number: US-AMGEN-USASP2011053107

PATIENT
  Sex: Female

DRUGS (2)
  1. ENBREL [Suspect]
     Indication: RHEUMATOID ARTHRITIS
     Dosage: 50 MG, QWK
     Dates: start: 20070301, end: 20110901
  2. METHOTREXATE [Concomitant]
     Dosage: 1 MG, UNK
     Dates: start: 20050101

REACTIONS (8)
  - SINUS DISORDER [None]
  - COUGH [None]
  - HEADACHE [None]
  - SINUS HEADACHE [None]
  - HYPERSENSITIVITY [None]
  - DIZZINESS [None]
  - SINUSITIS [None]
  - MALAISE [None]
